FAERS Safety Report 7979388-0 (Version None)
Quarter: 2011Q4

REPORT INFORMATION
  Report Type: 
  Country: None (occurrence: None)
  Receive Date: 20111213
  Receipt Date: 20111213
  Transmission Date: 20120403
  Serious: Yes (Hospitalization)
  Sender: FDA-Public Use
  Company Number: None

PATIENT
  Age: 79 Year
  Sex: Male
  Weight: 86.5 kg

DRUGS (2)
  1. CARBOPLATIN [Suspect]
     Indication: VOMITING
     Dosage: 250 MG IV
     Route: 042
     Dates: start: 20110802
  2. CARBOPLATIN [Suspect]
     Indication: NAUSEA
     Dosage: 250 MG IV
     Route: 042
     Dates: start: 20110802

REACTIONS (2)
  - VOMITING [None]
  - NAUSEA [None]
